FAERS Safety Report 8341357-9 (Version None)
Quarter: 2012Q2

REPORT INFORMATION
  Report Type: 
  Country: None (occurrence: None)
  Receive Date: 20120507
  Receipt Date: 20120504
  Transmission Date: 20120825
  Serious: Yes (Hospitalization)
  Sender: FDA-Public Use
  Company Number: DE-ABBOTT-11P-062-0708239-00

PATIENT
  Sex: Male
  Weight: 72 kg

DRUGS (6)
  1. HUMIRA [Suspect]
     Dosage: 40MG EOW
     Route: 058
  2. ESOMEPRAZOLE MAGNESIUM [Concomitant]
     Indication: PRODUCT USED FOR UNKNOWN INDICATION
  3. HUMIRA [Suspect]
     Indication: CROHN'S DISEASE
     Dosage: 80MG EVERY WEEK
     Route: 058
     Dates: start: 20090204
  4. PREDNISOLONE [Concomitant]
     Indication: CROHN'S DISEASE
  5. CEFUROXIME [Concomitant]
     Indication: CROHN'S DISEASE
  6. METAMIZOL [Concomitant]
     Indication: CROHN'S DISEASE

REACTIONS (3)
  - ILEAL STENOSIS [None]
  - INTESTINAL DILATATION [None]
  - SACROILIITIS [None]
